FAERS Safety Report 6602177-6 (Version None)
Quarter: 2010Q1

REPORT INFORMATION
  Report Type: 
  Country: None (occurrence: None)
  Receive Date: 20100225
  Receipt Date: 20100215
  Transmission Date: 20100710
  Serious: Yes (Hospitalization)
  Sender: FDA-Public Use
  Company Number: JP-SANOFI-AVENTIS-2010SA007573

PATIENT
  Age: 74 Year
  Sex: Female
  Weight: 49 kg

DRUGS (8)
  1. OXALIPLATIN [Suspect]
     Indication: RECTAL CANCER
     Route: 041
     Dates: start: 20100105, end: 20100105
  2. 5-FU [Suspect]
     Indication: RECTAL CANCER
     Route: 040
     Dates: start: 20100105, end: 20100105
  3. 5-FU [Suspect]
     Route: 041
     Dates: start: 20100105, end: 20100106
  4. AVASTIN [Suspect]
     Indication: RECTAL CANCER
     Route: 041
     Dates: start: 20100105, end: 20100105
  5. CALCIUM LEVOFOLINATE [Concomitant]
     Indication: RECTAL CANCER
     Route: 041
     Dates: start: 20100105, end: 20100105
  6. KYTRIL [Concomitant]
     Indication: PREMEDICATION
     Route: 041
     Dates: start: 20100105, end: 20100107
  7. DEXAMETHASONE SODIUM PHOSPHATE [Concomitant]
     Indication: PREMEDICATION
     Route: 041
     Dates: start: 20100105, end: 20100112
  8. PRIMPERAN [Concomitant]
     Indication: NAUSEA
     Route: 042
     Dates: start: 20100107, end: 20100112

REACTIONS (2)
  - DUODENAL ULCER [None]
  - GASTRIC ULCER [None]
